FAERS Safety Report 7141355-7 (Version None)
Quarter: 2010Q4

REPORT INFORMATION
  Report Type: 
  Country: None (occurrence: None)
  Receive Date: 20101202
  Receipt Date: 20101202
  Transmission Date: 20110411
  Serious: Yes (Hospitalization)
  Sender: FDA-Public Use
  Company Number: None

PATIENT
  Age: 57 Year
  Sex: Female

DRUGS (1)
  1. TOPIRAMATE [Suspect]
     Indication: MIGRAINE PROPHYLAXIS
     Dosage: 50MG BID PO
     Route: 048

REACTIONS (2)
  - CHEST PAIN [None]
  - MIDDLE INSOMNIA [None]
